FAERS Safety Report 21238805 (Version 1)
Quarter: 2022Q3

REPORT INFORMATION
  Report Type: Spontaneous
  Country: US (occurrence: None)
  Receive Date: 20220819
  Receipt Date: 20220819
  Transmission Date: 20221027
  Serious: Yes (Hospitalization)
  Sender: FDA-Public Use
  Company Number: None

PATIENT
  Age: 49 Year
  Sex: Male

DRUGS (1)
  1. BEBTELOVIMAB [Suspect]
     Active Substance: BEBTELOVIMAB
     Indication: COVID-19
     Dosage: FREQUENCY : ONCE;?
     Route: 042
     Dates: start: 20220713, end: 20220713

REACTIONS (5)
  - COVID-19 pneumonia [None]
  - Encephalopathy [None]
  - Convulsive threshold lowered [None]
  - Muscular weakness [None]
  - Dysphagia [None]

NARRATIVE: CASE EVENT DATE: 20220715
